FAERS Safety Report 4429761-2 (Version None)
Quarter: 2004Q3

REPORT INFORMATION
  Report Type: 
  Country: None (occurrence: None)
  Receive Date: 20040818
  Receipt Date: 20040818
  Transmission Date: 20050211
  Serious: Yes (Disabling)
  Sender: FDA-Public Use
  Company Number: None

PATIENT
  Age: 33 Year
  Sex: Female
  Weight: 68.0396 kg

DRUGS (4)
  1. AVELOX [Suspect]
     Indication: SINUSITIS
     Dosage: ONE PER DAY ORAL
     Route: 048
     Dates: start: 20040304, end: 20040308
  2. OXYCONTIN [Concomitant]
  3. PERCOCET [Concomitant]
  4. PRILOSEC [Concomitant]

REACTIONS (5)
  - CARPAL TUNNEL SYNDROME [None]
  - DIZZINESS [None]
  - NAUSEA [None]
  - SENSORY LOSS [None]
  - VOMITING [None]
